FAERS Safety Report 9353685 (Version 1)
Quarter: 2013Q2

REPORT INFORMATION
  Report Type: Spontaneous
  Country: US (occurrence: None)
  Receive Date: 20130617
  Receipt Date: 20130617
  Transmission Date: 20140414
  Serious: No
  Sender: FDA-Public Use
  Company Number: None

PATIENT
  Age: 63 Year
  Sex: Female
  Weight: 76.2 kg

DRUGS (3)
  1. TOPROL XL [Suspect]
     Indication: ANGINA PECTORIS
     Dosage: 1 PER DAY
     Route: 048
     Dates: start: 20130611, end: 20130615
  2. TOPROL XL [Suspect]
     Indication: CORONARY ARTERY DISEASE
     Dosage: 1 PER DAY
     Route: 048
     Dates: start: 20130611, end: 20130615
  3. ASPIRIN [Concomitant]

REACTIONS (2)
  - Breast pain [None]
  - Musculoskeletal chest pain [None]
